FAERS Safety Report 6217673-3 (Version None)
Quarter: 2009Q2

REPORT INFORMATION
  Report Type: 
  Country: None (occurrence: None)
  Receive Date: 20090603
  Receipt Date: 20090603
  Transmission Date: 20091009
  Serious: Yes (Other)
  Sender: FDA-Public Use
  Company Number: None

PATIENT
  Sex: Male
  Weight: 90.7194 kg

DRUGS (1)
  1. DIAZEPAM [Suspect]
     Indication: ANXIETY
     Dosage: 10 MG 3 X DAILY
     Dates: start: 20090201

REACTIONS (2)
  - DRUG EFFECT DECREASED [None]
  - TABLET ISSUE [None]
